FAERS Safety Report 6748757-9 (Version None)
Quarter: 2010Q2

REPORT INFORMATION
  Report Type: 
  Country: None (occurrence: None)
  Receive Date: 20100601
  Receipt Date: 20100519
  Transmission Date: 20101027
  Serious: Yes (Other)
  Sender: FDA-Public Use
  Company Number: PHHY2010US33758

PATIENT
  Age: 10 Year
  Sex: Female

DRUGS (5)
  1. CYCLOSPORINE [Suspect]
     Indication: PROPHYLAXIS AGAINST GRAFT VERSUS HOST DISEASE
     Dosage: UNK
  2. CYCLOSPORINE [Suspect]
     Indication: STEM CELL TRANSPLANT
  3. MYCOPHENOLATE MOFETIL [Concomitant]
  4. PHENYTOIN [Concomitant]
     Indication: CONVULSION PROPHYLAXIS
  5. NEUPOGEN [Concomitant]
     Route: 058

REACTIONS (8)
  - CONVULSION [None]
  - ENCEPHALOMALACIA [None]
  - HAEMOLYTIC ANAEMIA [None]
  - HERPES ZOSTER [None]
  - INFARCTION [None]
  - NEUROTOXICITY [None]
  - OVARIAN FAILURE [None]
  - REVERSIBLE POSTERIOR LEUKOENCEPHALOPATHY SYNDROME [None]
